FAERS Safety Report 10189373 (Version 2)
Quarter: 2014Q2

REPORT INFORMATION
  Report Type: Spontaneous
  Country: US (occurrence: US)
  Receive Date: 20140522
  Receipt Date: 20140522
  Transmission Date: 20141212
  Serious: No
  Sender: FDA-Public Use
  Company Number: US-BAXTER-2011BH032005

PATIENT
  Age: 47 Year
  Sex: Female
  Weight: 66.28 kg

DRUGS (5)
  1. GAMMAGARD LIQUID [Suspect]
     Indication: IMMUNODEFICIENCY
     Route: 042
     Dates: start: 2008, end: 2008
  2. GAMMAGARD LIQUID [Suspect]
     Indication: IMMUNODEFICIENCY COMMON VARIABLE
  3. MULTIVITAMINS [Concomitant]
     Indication: SUPPLEMENTATION THERAPY
     Route: 048
  4. Z-PAK [Concomitant]
     Indication: SINUSITIS
     Route: 048
     Dates: start: 20110912, end: 20110916
  5. MOTRIN [Concomitant]
     Indication: PAIN
     Route: 048
     Dates: start: 20110915, end: 20110915

REACTIONS (3)
  - Chest pain [Unknown]
  - Malaise [Recovered/Resolved]
  - Nausea [Recovered/Resolved]
